FAERS Safety Report 6359433-9 (Version None)
Quarter: 2009Q3

REPORT INFORMATION
  Report Type: 
  Country: None (occurrence: None)
  Receive Date: 20090917
  Receipt Date: 20090904
  Transmission Date: 20100115
  Serious: Yes (Other)
  Sender: FDA-Public Use
  Company Number: BR-PFIZER INC-2009264647

PATIENT
  Age: 46 Year

DRUGS (2)
  1. CHAMPIX [Suspect]
     Indication: NICOTINE DEPENDENCE
     Dosage: UNK MG, 1X/DAY
     Route: 048
     Dates: start: 20090629, end: 20090813
  2. LIPITOR [Suspect]
     Indication: BLOOD CHOLESTEROL
     Dosage: 10 MG, 1X/DAY
     Route: 048
     Dates: start: 20090525

REACTIONS (2)
  - MYALGIA [None]
  - WALKING DISABILITY [None]
